FAERS Safety Report 8066163-4 (Version None)
Quarter: 2012Q1

REPORT INFORMATION
  Report Type: 
  Country: None (occurrence: None)
  Receive Date: 20120124
  Receipt Date: 20120117
  Transmission Date: 20120608
  Serious: Yes (Death)
  Sender: FDA-Public Use
  Company Number: IR-ABBOTT-12R-080-0893787-00

PATIENT
  Age: 5 Day

DRUGS (1)
  1. SURVANTA [Suspect]
     Indication: ACUTE RESPIRATORY DISTRESS SYNDROME
     Dosage: INTRATRACHEAL 4ML (100 MG)

REACTIONS (1)
  - PULMONARY HAEMORRHAGE [None]
